FAERS Safety Report 18741526 (Version 1)
Quarter: 2021Q1

REPORT INFORMATION
  Report Type: Spontaneous
  Country: US (occurrence: US)
  Receive Date: 20210114
  Receipt Date: 20210114
  Transmission Date: 20210419
  Serious: No
  Sender: FDA-Public Use
  Company Number: US-ABBVIE-20K-163-3298063-00

PATIENT
  Sex: Male

DRUGS (2)
  1. DUOPA [Suspect]
     Active Substance: CARBIDOPA\LEVODOPA
     Indication: PARKINSON^S DISEASE
     Route: 050
     Dates: start: 20190325
  2. DUOPA [Suspect]
     Active Substance: CARBIDOPA\LEVODOPA

REACTIONS (11)
  - Device dislocation [Not Recovered/Not Resolved]
  - Stoma site haemorrhage [Unknown]
  - Decubitus ulcer [Not Recovered/Not Resolved]
  - Blister [Not Recovered/Not Resolved]
  - Muscle contracture [Recovering/Resolving]
  - Back injury [Unknown]
  - Joint contracture [Recovering/Resolving]
  - Hallucination [Not Recovered/Not Resolved]
  - Device leakage [Not Recovered/Not Resolved]
  - Respiratory disorder [Unknown]
  - On and off phenomenon [Not Recovered/Not Resolved]

NARRATIVE: CASE EVENT DATE: 2019
